FAERS Safety Report 5945724-X (Version None)
Quarter: 2008Q4

REPORT INFORMATION
  Report Type: 
  Country: None (occurrence: None)
  Receive Date: 20081107
  Receipt Date: 20081102
  Transmission Date: 20090506
  Serious: Yes (Hospitalization)
  Sender: FDA-Public Use
  Company Number: US-AMGEN-QUU317675

PATIENT
  Sex: Male

DRUGS (3)
  1. ENBREL [Suspect]
     Indication: RHEUMATOID ARTHRITIS
     Route: 064
     Dates: start: 20031101
  2. METHOTREXATE [Concomitant]
     Route: 064
  3. PREDNISONE TAB [Concomitant]
     Route: 064

REACTIONS (2)
  - FEEDING DISORDER NEONATAL [None]
  - PREMATURE BABY [None]
